FAERS Safety Report 10227610 (Version 2)
Quarter: 2014Q2

REPORT INFORMATION
  Report Type: Report from Study
  Country: US (occurrence: US)
  Receive Date: 20140610
  Receipt Date: 20140616
  Transmission Date: 20141212
  Serious: Yes (Death, Hospitalization)
  Sender: FDA-Public Use
  Company Number: US-BAYER-2014-081365

PATIENT
  Age: 66 Year
  Sex: Male
  Weight: 162 kg

DRUGS (9)
  1. SORAFENIB (RAF KINASE INHIBITOR) [Suspect]
     Indication: HEPATOCELLULAR CARCINOMA
     Dosage: 200 MG, QD
     Route: 048
     Dates: start: 20140113, end: 20140226
  2. TEMSIROLIMUS [Suspect]
     Indication: HEPATOCELLULAR CARCINOMA
     Dosage: 7.5 MG WEEKLY
     Route: 048
     Dates: start: 20140113, end: 20140224
  3. TRIAMCINOLONE ACETONIDE [Concomitant]
     Dosage: UNK
     Dates: start: 20140120
  4. UREA [Concomitant]
     Dosage: UNK
     Dates: start: 20140120
  5. SENNA [Concomitant]
     Dosage: UNK
     Dates: start: 20140120
  6. HYDROMORPHONE [Concomitant]
     Dosage: UNK
     Dates: start: 20140120
  7. ZOFRAN [Concomitant]
     Indication: NAUSEA
     Dosage: UNK
     Dates: start: 20140113
  8. ZOFRAN [Concomitant]
     Indication: VOMITING
  9. RITALIN [Concomitant]
     Dosage: UNK
     Dates: start: 20140210

REACTIONS (5)
  - Sepsis [Fatal]
  - Deep vein thrombosis [Not Recovered/Not Resolved]
  - Convulsion [Recovered/Resolved]
  - Nausea [Recovered/Resolved]
  - Vomiting [Recovered/Resolved]
